FAERS Safety Report 6607164-X (Version None)
Quarter: 2010Q1

REPORT INFORMATION
  Report Type: 
  Country: None (occurrence: None)
  Receive Date: 20100212
  Receipt Date: 20091030
  Transmission Date: 20100710
  Serious: No
  Sender: FDA-Public Use
  Company Number: 1000009816

PATIENT
  Age: 61 Year
  Sex: Male

DRUGS (19)
  1. SAVELLA [Suspect]
     Indication: FIBROMYALGIA
     Dosage: 12.5 MG (12.5 MG, 1 IN 1 D), ORAL : 25 MG (12.5 MG, 2 IN 1 D), ORAL : 50 MG (25 MG, 2 IN 1 D), ORAL
     Route: 048
     Dates: start: 20090817, end: 20090817
  2. SAVELLA [Suspect]
     Indication: FIBROMYALGIA
     Dosage: 12.5 MG (12.5 MG, 1 IN 1 D), ORAL : 25 MG (12.5 MG, 2 IN 1 D), ORAL : 50 MG (25 MG, 2 IN 1 D), ORAL
     Route: 048
     Dates: start: 20090818, end: 20090819
  3. SAVELLA [Suspect]
     Indication: FIBROMYALGIA
     Dosage: 12.5 MG (12.5 MG, 1 IN 1 D), ORAL : 25 MG (12.5 MG, 2 IN 1 D), ORAL : 50 MG (25 MG, 2 IN 1 D), ORAL
     Route: 048
     Dates: start: 20090820, end: 20090823
  4. SAVELLA [Suspect]
     Indication: FIBROMYALGIA
     Dosage: 100 MG (50 MG, 2 IN 1 D), ORAL
     Route: 048
     Dates: start: 20090824, end: 20091014
  5. CARDURA [Concomitant]
  6. AVODART [Concomitant]
  7. LIMBREL [Concomitant]
  8. HYDROCODONE [Concomitant]
  9. SINGULAIR [Concomitant]
  10. FLOVENT [Concomitant]
  11. PROVENTIL [Concomitant]
  12. FLONASE(NASAL DROPS/SPRAY) [Concomitant]
  13. .. [Concomitant]
  14. VERAPAMIL [Concomitant]
  15. LISINOPRIL [Concomitant]
  16. DILTIAZEM HCL [Concomitant]
  17. ALLOPURINOL [Concomitant]
  18. LIBRIUM [Concomitant]
  19. TRAMADOL HCL [Concomitant]

REACTIONS (1)
  - NIGHT SWEATS [None]
